FAERS Safety Report 6703419-9 (Version None)
Quarter: 2010Q2

REPORT INFORMATION
  Report Type: 
  Country: None (occurrence: None)
  Receive Date: 20100430
  Receipt Date: 20100426
  Transmission Date: 20101027
  Serious: Yes (Life-Threatening)
  Sender: FDA-Public Use
  Company Number: JP-B.I. PHARMACEUTICALS,INC./RIDGEFIELD-2008-BP-13775NB

PATIENT
  Sex: Male
  Weight: 60.5 kg

DRUGS (6)
  1. MICARDIS [Suspect]
     Indication: HYPERTENSION
     Dosage: 40 MG
     Route: 048
     Dates: start: 20080501, end: 20080904
  2. BASEN [Concomitant]
     Indication: DIABETES MELLITUS
     Dosage: 0.3 MG
     Route: 048
     Dates: end: 20080904
  3. AMLODIN [Concomitant]
     Indication: HYPERTENSION
     Dosage: 5 MG
     Route: 048
     Dates: end: 20080904
  4. URSO 250 [Concomitant]
     Indication: CHOLELITHIASIS
     Dosage: 100 MG
     Route: 048
     Dates: end: 20080904
  5. NELBIS [Concomitant]
     Indication: DIABETES MELLITUS
     Dosage: 250 MG
     Route: 048
     Dates: end: 20080904
  6. NOVOLIN R [Concomitant]
     Indication: DIABETES MELLITUS
     Dosage: 18 U
     Route: 058
     Dates: end: 20080904

REACTIONS (1)
  - RHABDOMYOLYSIS [None]
